FAERS Safety Report 6290492-8 (Version None)
Quarter: 2009Q3

REPORT INFORMATION
  Report Type: 
  Country: None (occurrence: None)
  Receive Date: 20090730
  Receipt Date: 20090511
  Transmission Date: 20100115
  Serious: Yes (Hospitalization)
  Sender: FDA-Public Use
  Company Number: US-BRISTOL-MYERS SQUIBB COMPANY-14617831

PATIENT
  Age: 64 Year
  Sex: Female

DRUGS (13)
  1. COUMADIN [Suspect]
     Indication: PULMONARY HYPERTENSION
  2. COUMADIN [Suspect]
     Indication: PULMONARY EMBOLISM
  3. COUMADIN [Suspect]
     Indication: ATRIAL FIBRILLATION
  4. ASPIRIN [Suspect]
     Indication: PULMONARY EMBOLISM
  5. LETAIRIS [Suspect]
     Indication: PULMONARY ARTERIAL HYPERTENSION
     Route: 048
     Dates: start: 20070701
  6. TREPROSTINIL [Concomitant]
     Indication: PULMONARY HYPERTENSION
     Dosage: SUBCUTANEOUS REMODULIN INITIATION ON 04-MAR-2009
     Dates: start: 20090201
  7. LANOXIN [Concomitant]
     Indication: CARDIAC FAILURE CONGESTIVE
  8. AVAPRO [Concomitant]
     Indication: HYPERTENSION
  9. TOPROL-XL [Concomitant]
     Indication: HYPERTENSION
  10. TOPROL-XL [Concomitant]
     Indication: CARDIAC FAILURE CONGESTIVE
  11. LASIX [Concomitant]
     Indication: CARDIAC FAILURE CONGESTIVE
  12. ALDACTONE [Concomitant]
     Indication: CARDIAC FAILURE CONGESTIVE
  13. REVATIO [Concomitant]
     Dates: start: 20050823

REACTIONS (1)
  - LOWER GASTROINTESTINAL HAEMORRHAGE [None]
